FAERS Safety Report 8419612-3 (Version None)
Quarter: 2012Q2

REPORT INFORMATION
  Report Type: 
  Country: None (occurrence: None)
  Receive Date: 20120607
  Receipt Date: 20120530
  Transmission Date: 20120825
  Serious: Yes (Hospitalization, Disabling, Other)
  Sender: FDA-Public Use
  Company Number: US-MERCK-1201USA00875

PATIENT
  Age: 48 Year
  Sex: Female
  Weight: 55 kg

DRUGS (2)
  1. FOSAMAX [Suspect]
     Route: 048
     Dates: end: 20080208
  2. ALENDRONATE SODIUM [Suspect]
     Route: 048
     Dates: start: 20060724, end: 20110602

REACTIONS (25)
  - ANAEMIA [None]
  - THALASSAEMIA BETA [None]
  - DERMAL CYST [None]
  - ARTHRITIS [None]
  - BUNDLE BRANCH BLOCK LEFT [None]
  - CARDIAC MURMUR [None]
  - FEELING JITTERY [None]
  - OSTEOPENIA [None]
  - PALPITATIONS [None]
  - OSTEONECROSIS OF JAW [None]
  - ROTATOR CUFF SYNDROME [None]
  - ILIOTIBIAL BAND SYNDROME [None]
  - TOOTH DISORDER [None]
  - ADVERSE DRUG REACTION [None]
  - CARDIOMYOPATHY [None]
  - PATELLOFEMORAL PAIN SYNDROME [None]
  - JOINT INJURY [None]
  - OSTEOARTHRITIS [None]
  - MITRAL VALVE INCOMPETENCE [None]
  - ANXIETY [None]
  - CHRONIC OBSTRUCTIVE PULMONARY DISEASE [None]
  - HEADACHE [None]
  - DIZZINESS [None]
  - DENTAL CARIES [None]
  - GINGIVAL BLEEDING [None]
